FAERS Safety Report 16631778 (Version 2)
Quarter: 2019Q3

REPORT INFORMATION
  Report Type: Spontaneous
  Country: PR (occurrence: PR)
  Receive Date: 20190725
  Receipt Date: 20190822
  Transmission Date: 20191004
  Serious: Yes (Other)
  Sender: FDA-Public Use
  Company Number: PR-BAYER-2019-095158

PATIENT
  Age: 67 Year
  Sex: Female

DRUGS (3)
  1. NEXAVAR [Suspect]
     Active Substance: SORAFENIB
     Indication: HEPATOCELLULAR CARCINOMA
     Dosage: 200 MG, BID
     Dates: start: 20190506
  2. NEXAVAR [Suspect]
     Active Substance: SORAFENIB
     Indication: HEPATOCELLULAR CARCINOMA
     Dosage: 200 MG, BID
     Route: 048
     Dates: start: 20190513
  3. NEXAVAR [Suspect]
     Active Substance: SORAFENIB
     Indication: HEPATOCELLULAR CARCINOMA
     Dosage: 200 MG, BID
     Route: 048

REACTIONS (8)
  - Off label use [None]
  - Faeces discoloured [Recovered/Resolved]
  - Dysuria [Not Recovered/Not Resolved]
  - Rash [Unknown]
  - Renal neoplasm [Not Recovered/Not Resolved]
  - Diarrhoea [Recovered/Resolved]
  - Nausea [Recovered/Resolved]
  - Hypertension [Unknown]
